FAERS Safety Report 5501814-7 (Version None)
Quarter: 2007Q4

REPORT INFORMATION
  Report Type: 
  Country: None (occurrence: None)
  Receive Date: 20071030
  Receipt Date: 20071022
  Transmission Date: 20080405
  Serious: Yes (Hospitalization)
  Sender: FDA-Public Use
  Company Number: ES-ASTRAZENECA-2007SE05752

PATIENT
  Age: 78 Year
  Sex: Male

DRUGS (5)
  1. PARAPRES [Suspect]
     Indication: HYPERTENSION
     Route: 048
     Dates: start: 20070315, end: 20070628
  2. ZYLORIC [Suspect]
     Indication: HYPERURICAEMIA
     Route: 048
     Dates: start: 20070529, end: 20070530
  3. PANTOPRAZOL [Suspect]
     Indication: GASTROOESOPHAGEAL REFLUX DISEASE
     Route: 048
     Dates: start: 20070301, end: 20070628
  4. COLCHICINE HOUDE [Suspect]
     Indication: GOUT
     Route: 048
     Dates: start: 20070529, end: 20070530
  5. HEMOVAS [Suspect]
     Indication: ISCHAEMIA
     Route: 065
     Dates: start: 20010201, end: 20070628

REACTIONS (1)
  - BONE MARROW FAILURE [None]
